FAERS Safety Report 5935955-7 (Version None)
Quarter: 2008Q4

REPORT INFORMATION
  Report Type: 
  Country: None (occurrence: None)
  Receive Date: 20081030
  Receipt Date: 20080818
  Transmission Date: 20090506
  Serious: No
  Sender: FDA-Public Use
  Company Number: US-BAYER-200813483BCC

PATIENT
  Age: 60 Year
  Sex: Male
  Weight: 68 kg

DRUGS (6)
  1. ALEVE [Suspect]
     Indication: ARTHRALGIA
     Dosage: TOTAL DAILY DOSE: 220 MG  UNIT DOSE: 220 MG
     Route: 048
     Dates: start: 20080601
  2. PLAVIX [Concomitant]
  3. HYDRODIURIL [Concomitant]
  4. ATENOLOL [Concomitant]
  5. ZETIA [Concomitant]
  6. CENTRAL-VITE [Concomitant]

REACTIONS (1)
  - ARTHRALGIA [None]
